FAERS Safety Report 25269294 (Version 1)
Quarter: 2025Q2

REPORT INFORMATION
  Report Type: Report from Study
  Country: US (occurrence: US)
  Receive Date: 20250505
  Receipt Date: 20250505
  Transmission Date: 20250716
  Serious: No
  Sender: DR REDDYS
  Company Number: US-DRL-USA-USA/2025/04/006037

PATIENT
  Age: 6 Year
  Sex: Male
  Weight: 23 kg

DRUGS (1)
  1. JAVYGTOR [Suspect]
     Active Substance: SAPROPTERIN DIHYDROCHLORIDE
     Indication: Phenylketonuria
     Route: 048
     Dates: start: 20250409

REACTIONS (5)
  - Restlessness [Unknown]
  - Psychomotor hyperactivity [Recovered/Resolved]
  - Abdominal pain upper [Not Recovered/Not Resolved]
  - Overdose [Unknown]
  - Product prescribing error [Unknown]
